FAERS Safety Report 21049250 (Version 1)
Quarter: 2022Q3

REPORT INFORMATION
  Report Type: Spontaneous
  Country: US (occurrence: None)
  Receive Date: 20220706
  Receipt Date: 20220706
  Transmission Date: 20221026
  Serious: Yes (Hospitalization)
  Sender: FDA-Public Use
  Company Number: None

PATIENT
  Sex: 0

DRUGS (1)
  1. VEKLURY [Suspect]
     Active Substance: REMDESIVIR
     Route: 041

REACTIONS (2)
  - Bradycardia [None]
  - Hypersensitivity [None]

NARRATIVE: CASE EVENT DATE: 20220524
